FAERS Safety Report 12326258 (Version 2)
Quarter: 2016Q2

REPORT INFORMATION
  Report Type: Report from Study
  Country: CA (occurrence: CA)
  Receive Date: 20160503
  Receipt Date: 20160516
  Transmission Date: 20160815
  Serious: Yes (Other)
  Sender: FDA-Public Use
  Company Number: CA-ROCHE-1750044

PATIENT
  Age: 34 Year
  Sex: Male

DRUGS (9)
  1. XOLAIR [Suspect]
     Active Substance: OMALIZUMAB
     Indication: CHRONIC SPONTANEOUS URTICARIA
     Route: 058
     Dates: start: 20150730
  2. FLOVENT [Concomitant]
     Active Substance: FLUTICASONE PROPIONATE
  3. PROSCAR [Concomitant]
     Active Substance: FINASTERIDE
  4. BENADRYL [Concomitant]
     Active Substance: DIPHENHYDRAMINE HYDROCHLORIDE
  5. VENTOLIN [Concomitant]
     Active Substance: ALBUTEROL SULFATE
  6. REACTINE (CANADA) [Concomitant]
     Active Substance: CETIRIZINE HYDROCHLORIDE
  7. XOLAIR [Suspect]
     Active Substance: OMALIZUMAB
     Route: 058
     Dates: start: 20150827
  8. XOLAIR [Suspect]
     Active Substance: OMALIZUMAB
     Route: 058
     Dates: start: 20160310
  9. XOLAIR [Suspect]
     Active Substance: OMALIZUMAB
     Route: 058
     Dates: start: 20160407

REACTIONS (23)
  - Contusion [Unknown]
  - Anxiety [Unknown]
  - Vomiting [Unknown]
  - Skin lesion [Unknown]
  - Hypophagia [Unknown]
  - Weight increased [Unknown]
  - Choking [Unknown]
  - Acne [Not Recovered/Not Resolved]
  - Productive cough [Unknown]
  - Nasal congestion [Unknown]
  - Pruritus genital [Unknown]
  - Food allergy [Unknown]
  - Diarrhoea [Unknown]
  - Pruritus [Not Recovered/Not Resolved]
  - Dyspnoea [Unknown]
  - Fatigue [Unknown]
  - Headache [Unknown]
  - Pain [Not Recovered/Not Resolved]
  - Weight fluctuation [Unknown]
  - Urticaria [Recovering/Resolving]
  - Paraesthesia [Unknown]
  - Angioedema [Recovering/Resolving]
  - Hypersensitivity [Unknown]

NARRATIVE: CASE EVENT DATE: 20150827
